FAERS Safety Report 14345668 (Version 1)
Quarter: 2017Q4

REPORT INFORMATION
  Report Type: Spontaneous
  Country: US (occurrence: US)
  Receive Date: 20171230
  Receipt Date: 20171230
  Transmission Date: 20180321
  Serious: No
  Sender: FDA-Public Use
  Company Number: None

PATIENT
  Sex: Female

DRUGS (1)
  1. COPAXONE [Suspect]
     Active Substance: GLATIRAMER ACETATE
     Indication: PRODUCT USED FOR UNKNOWN INDICATION
     Route: 058
     Dates: start: 20160823, end: 20171213

REACTIONS (7)
  - Palpitations [None]
  - Chills [None]
  - Therapy cessation [None]
  - Nasopharyngitis [None]
  - Abdominal pain upper [None]
  - Nausea [None]
  - Throat tightness [None]
